FAERS Safety Report 17744352 (Version 2)
Quarter: 2020Q2

REPORT INFORMATION
  Report Type: Report from Study
  Country: CH (occurrence: CH)
  Receive Date: 20200504
  Receipt Date: 20200505
  Transmission Date: 20200714
  Serious: No
  Sender: FDA-Public Use
  Company Number: CH-BAYER-2020-075224

PATIENT
  Age: 41 Year
  Sex: Female

DRUGS (1)
  1. MIRENA [Suspect]
     Active Substance: LEVONORGESTREL
     Dosage: 20 ?G PER DAY CONTINUOUSLY
     Route: 015
     Dates: start: 20141211, end: 20200430

REACTIONS (3)
  - Device physical property issue [Recovered/Resolved]
  - Complication of device removal [Recovered/Resolved]
  - Device use issue [Recovered/Resolved]

NARRATIVE: CASE EVENT DATE: 20200430
